FAERS Safety Report 4936238-4 (Version None)
Quarter: 2006Q1

REPORT INFORMATION
  Report Type: 
  Country: None (occurrence: None)
  Receive Date: 20060307
  Receipt Date: 20051219
  Transmission Date: 20060701
  Serious: No
  Sender: FDA-Public Use
  Company Number: US-GLAXOSMITHKLINE-A0586699A

PATIENT
  Age: 47 Year
  Sex: Male
  Weight: 128.2 kg

DRUGS (4)
  1. REQUIP [Suspect]
     Indication: RESTLESS LEGS SYNDROME
     Dosage: 1MG AT NIGHT
     Route: 048
     Dates: start: 20051213
  2. LUNESTA [Suspect]
     Indication: INSOMNIA
     Dosage: 3MG AT NIGHT
     Route: 048
     Dates: start: 20051213, end: 20060212
  3. NORCO [Concomitant]
     Indication: PAIN
     Dosage: 2TAB FOUR TIMES PER DAY
     Route: 048
     Dates: start: 20050101
  4. SOMA [Concomitant]
     Route: 048
     Dates: start: 20050101

REACTIONS (1)
  - DYSGEUSIA [None]
